FAERS Safety Report 17168913 (Version 1)
Quarter: 2019Q4

REPORT INFORMATION
  Report Type: Spontaneous
  Country: IT (occurrence: IT)
  Receive Date: 20191218
  Receipt Date: 20191218
  Transmission Date: 20200122
  Serious: Yes (Death, Life-Threatening, Other)
  Sender: FDA-Public Use
  Company Number: IT-AMGEN-ITASP2019207982

PATIENT

DRUGS (1)
  1. ROMIPLOSTIM [Suspect]
     Active Substance: ROMIPLOSTIM
     Indication: IMMUNE THROMBOCYTOPENIC PURPURA
     Dosage: UNK
     Route: 065

REACTIONS (31)
  - Acute myocardial infarction [Fatal]
  - Haemorrhage [Fatal]
  - Haemorrhage urinary tract [Unknown]
  - Cardiac disorder [Fatal]
  - Multiple organ dysfunction syndrome [Fatal]
  - Dementia [Fatal]
  - Injury [Fatal]
  - Arterial thrombosis [Fatal]
  - Cerebrovascular accident [Fatal]
  - Pulmonary haemorrhage [Fatal]
  - Acute myeloid leukaemia [Fatal]
  - Peripheral ischaemia [Unknown]
  - Transient ischaemic attack [Unknown]
  - Haemorrhage intracranial [Fatal]
  - Meningitis [Unknown]
  - Septic shock [Fatal]
  - Sepsis [Unknown]
  - Herpes zoster [Unknown]
  - Gastrointestinal haemorrhage [Fatal]
  - Infection [Fatal]
  - Neoplasm [Fatal]
  - Influenza [Unknown]
  - Mucocutaneous haemorrhage [Unknown]
  - Intestinal obstruction [Fatal]
  - Renal failure [Fatal]
  - Deep vein thrombosis [Unknown]
  - Pneumonia [Fatal]
  - Respiratory failure [Fatal]
  - Urinary tract infection [Unknown]
  - Upper respiratory tract infection [Unknown]
  - Drug ineffective [Unknown]
